FAERS Safety Report 10248315 (Version 1)
Quarter: 2014Q2

REPORT INFORMATION
  Report Type: Spontaneous
  Country: US (occurrence: US)
  Receive Date: 20140620
  Receipt Date: 20140620
  Transmission Date: 20141212
  Serious: Yes (Other)
  Sender: FDA-Public Use
  Company Number: US-DRREDDYS-USA/USA/14/0041150

PATIENT
  Age: 34 Year
  Sex: Female

DRUGS (30)
  1. ZONISAMIDE [Suspect]
     Indication: MANIA
     Route: 065
  2. RISPERIDONE TABLETS [Suspect]
     Indication: BIPOLAR DISORDER
     Route: 065
  3. QUETIAPINE FUMARATE TABLETS [Suspect]
     Indication: BIPOLAR DISORDER
     Route: 065
  4. FLUOXETINE [Suspect]
     Indication: BIPOLAR DISORDER
     Route: 065
  5. VENLAFAXINE HYDROCHLORIDE [Suspect]
     Indication: BIPOLAR DISORDER
     Route: 065
  6. SERTRALINE HYDROCHLORIDE [Suspect]
     Indication: BIPOLAR DISORDER
     Route: 065
  7. CITALOPRAM [Suspect]
     Indication: BIPOLAR DISORDER
     Route: 065
  8. VALPROIC ACID [Concomitant]
     Indication: BIPOLAR DISORDER
     Route: 065
  9. BUPROPION [Concomitant]
     Indication: BIPOLAR DISORDER
     Route: 065
  10. BUSPIRONE [Concomitant]
     Indication: BIPOLAR DISORDER
     Route: 065
  11. NORTRIPTYLINE [Concomitant]
     Indication: BIPOLAR DISORDER
     Route: 065
  12. CHLORPROMAZINE [Concomitant]
     Indication: BIPOLAR DISORDER
     Route: 065
  13. TRIFLUOPERAZINE [Concomitant]
     Indication: BIPOLAR DISORDER
     Route: 065
  14. HALOPERIDOL [Concomitant]
     Indication: BIPOLAR DISORDER
     Route: 065
  15. DESIPRAMINE [Concomitant]
     Indication: BIPOLAR DISORDER
     Route: 065
  16. CLOMIPRAMINE [Concomitant]
     Indication: BIPOLAR DISORDER
     Route: 065
  17. PAROXETINE [Concomitant]
     Indication: BIPOLAR DISORDER
     Route: 065
  18. CARBAMAZEPINE [Concomitant]
     Indication: BIPOLAR DISORDER
     Route: 065
  19. IMIPRAMINE [Concomitant]
     Indication: NARCOLEPSY
     Route: 065
  20. METHYLPHENIDATE [Concomitant]
     Indication: NARCOLEPSY
     Route: 065
  21. PEMOLINE [Concomitant]
     Indication: NARCOLEPSY
     Route: 065
  22. MODAFINIL [Concomitant]
     Indication: NARCOLEPSY
     Route: 065
  23. PROTRIPTYLINE [Concomitant]
     Indication: DEPRESSION
     Route: 065
  24. PROTRIPTYLINE [Concomitant]
     Indication: CATAPLEXY
  25. ESCITALOPRAM [Concomitant]
     Indication: NARCOLEPSY
     Route: 065
  26. ESCITALOPRAM [Concomitant]
     Route: 065
  27. ARIPIPRAZOLE [Concomitant]
     Indication: NARCOLEPSY
     Route: 065
  28. ARIPIPRAZOLE [Concomitant]
     Dosage: 20 MG QAM AND 15 MG QHS
     Route: 065
  29. ARIPIPRAZOLE [Concomitant]
     Route: 065
  30. TOPIRAMATE [Concomitant]
     Indication: BIPOLAR DISORDER
     Route: 065

REACTIONS (6)
  - Psychotic disorder [Recovered/Resolved]
  - Mania [Unknown]
  - Narcolepsy [Unknown]
  - Sedation [Unknown]
  - Drug ineffective [Unknown]
  - Product quality issue [Unknown]
